FAERS Safety Report 18265051 (Version 1)
Quarter: 2020Q3

REPORT INFORMATION
  Report Type: Other
  Country: SE (occurrence: SE)
  Receive Date: 20200914
  Receipt Date: 20200914
  Transmission Date: 20201103
  Serious: Yes (Death, Hospitalization)
  Sender: FDA-Public Use
  Company Number: SE-GE HEALTHCARE LIFE SCIENCES-OMPQ-NO-0911S-0921

PATIENT

DRUGS (9)
  1. KLEXANE [Concomitant]
     Active Substance: ENOXAPARIN
  2. OMNIPAQUE [Suspect]
     Active Substance: IOHEXOL
     Indication: JAUNDICE
     Dosage: DOSE NOT REPORTED, SINGLE
     Route: 042
     Dates: start: 20090530, end: 20090530
  3. OMNIPAQUE [Suspect]
     Active Substance: IOHEXOL
     Indication: COMPUTERISED TOMOGRAM
  4. BETAPRED [Concomitant]
     Active Substance: BETAMETHASONE SODIUM PHOSPHATE
  5. ADALAT [Concomitant]
     Active Substance: NIFEDIPINE
  6. ALLOPURINOL. [Concomitant]
     Active Substance: ALLOPURINOL
  7. TROMBYL [Concomitant]
     Active Substance: ASPIRIN
  8. OMNIPAQUE [Suspect]
     Active Substance: IOHEXOL
     Indication: MUSCULAR WEAKNESS
  9. SIMVASTATIN. [Suspect]
     Active Substance: SIMVASTATIN
     Indication: PRODUCT USED FOR UNKNOWN INDICATION
     Dosage: 80 MG
     Route: 048
     Dates: end: 200905

REACTIONS (2)
  - Acute kidney injury [Fatal]
  - Rhabdomyolysis [Fatal]

NARRATIVE: CASE EVENT DATE: 200905
